FAERS Safety Report 9840160 (Version 1)
Quarter: 2014Q1

REPORT INFORMATION
  Report Type: Spontaneous
  Country: JP (occurrence: JP)
  Receive Date: 20140124
  Receipt Date: 20140124
  Transmission Date: 20141002
  Serious: Yes (Hospitalization, Other)
  Sender: FDA-Public Use
  Company Number: JP-BAYER-2014-006961

PATIENT
  Sex: Female

DRUGS (1)
  1. YAZ [Suspect]
     Indication: DYSMENORRHOEA
     Dosage: UNK
     Route: 048
     Dates: start: 20131231, end: 20140103

REACTIONS (5)
  - Headache [None]
  - Dyspnoea [None]
  - Anaemia [None]
  - Metrorrhagia [None]
  - Peripheral coldness [None]
